FAERS Safety Report 4539618-4 (Version None)
Quarter: 2004Q4

REPORT INFORMATION
  Report Type: 
  Country: None (occurrence: None)
  Receive Date: 20041228
  Receipt Date: 20041222
  Transmission Date: 20050328
  Serious: Yes (Death, Hospitalization)
  Sender: FDA-Public Use
  Company Number: PHBS2004JP17284

PATIENT
  Age: 39 Year
  Sex: Male

DRUGS (7)
  1. TACROLIMUS [Suspect]
     Dates: start: 20030701
  2. PREDNISOLONE [Suspect]
     Dosage: 10 MG/D
     Dates: start: 20030701
  3. PREDNISOLONE [Suspect]
     Dates: start: 20040227
  4. CYCLOPHOSPHAMIDE [Concomitant]
  5. CYTARABINE [Concomitant]
  6. METHOTREXATE [Concomitant]
  7. CYCLOSPORINE [Suspect]
     Dates: start: 20000201, end: 20030701

REACTIONS (2)
  - HERPES ZOSTER [None]
  - OBLITERATIVE BRONCHIOLITIS [None]
